FAERS Safety Report 6321704-X (Version None)
Quarter: 2009Q3

REPORT INFORMATION
  Report Type: 
  Country: None (occurrence: None)
  Receive Date: 20090821
  Receipt Date: 20090821
  Transmission Date: 20100115
  Serious: No
  Sender: FDA-Public Use
  Company Number: None

PATIENT
  Age: 82 Year
  Sex: Female
  Weight: 68.0396 kg

DRUGS (1)
  1. ACTONEL [Suspect]
     Indication: OSTEOPOROSIS
     Dosage: 150 MG TAB. 1 /MONTHLY ORAL
     Route: 048

REACTIONS (5)
  - ARTHRALGIA [None]
  - FATIGUE [None]
  - GLOSSODYNIA [None]
  - MYALGIA [None]
  - ORAL DISORDER [None]
